FAERS Safety Report 7442119-7 (Version None)
Quarter: 2011Q2

REPORT INFORMATION
  Report Type: 
  Country: None (occurrence: None)
  Receive Date: 20110428
  Receipt Date: 20110415
  Transmission Date: 20111010
  Serious: Yes (Hospitalization)
  Sender: FDA-Public Use
  Company Number: PHHY2010JP39509

PATIENT
  Sex: Male
  Weight: 45 kg

DRUGS (12)
  1. PREDONINE [Concomitant]
     Dosage: 1 DF, UNK
     Route: 048
     Dates: end: 20091206
  2. EXJADE [Suspect]
     Indication: IRON OVERLOAD
     Dosage: 875 MG/DAY
     Route: 048
     Dates: start: 20090930, end: 20091015
  3. LASIX [Concomitant]
     Dosage: 0.5 DF, UNK
     Route: 048
     Dates: end: 20091025
  4. UROCALUN [Concomitant]
     Dosage: 6 DF, UNK
     Route: 048
     Dates: end: 20091206
  5. ATARAX [Concomitant]
  6. DIGOSIN [Concomitant]
     Dosage: 0.5 DF, UNK
     Route: 048
  7. EXJADE [Suspect]
     Dosage: 250 MG/DAY
     Route: 048
     Dates: start: 20091204, end: 20091218
  8. ROCALTROL [Concomitant]
     Dosage: 3 DF, UNK
     Route: 048
     Dates: start: 20090706
  9. LIVACT [Concomitant]
     Dosage: 2 DF, UNK
     Route: 048
  10. EXJADE [Suspect]
     Indication: APLASTIC ANAEMIA
     Dosage: 875 MG/DAY
     Route: 048
     Dates: start: 20090710, end: 20090806
  11. RED BLOOD CELLS, CONCENTRATED [Concomitant]
     Dosage: 2 UNITS EVERY THREE WEEKS
     Dates: end: 20090828
  12. PARIET [Concomitant]

REACTIONS (2)
  - ALTERED STATE OF CONSCIOUSNESS [None]
  - RENAL IMPAIRMENT [None]
